FAERS Safety Report 5149142-6 (Version None)
Quarter: 2006Q4

REPORT INFORMATION
  Report Type: 
  Country: None (occurrence: None)
  Receive Date: 20061113
  Receipt Date: 20060809
  Transmission Date: 20070319
  Serious: No
  Sender: FDA-Public Use
  Company Number: US-GLAXOSMITHKLINE-A0616154A

PATIENT
  Sex: Male

DRUGS (8)
  1. COREG [Suspect]
     Indication: DRUG USE FOR UNKNOWN INDICATION
     Route: 048
  2. NPH INSULIN [Concomitant]
     Route: 042
  3. GLUCOPHAGE [Concomitant]
     Route: 048
  4. GLYNASE [Concomitant]
     Route: 048
  5. PLAVIX [Concomitant]
     Route: 048
  6. IMDUR [Concomitant]
  7. PRINIVIL [Concomitant]
  8. ATENOLOL [Concomitant]

REACTIONS (1)
  - PRURITUS [None]
